FAERS Safety Report 23534390 (Version 1)
Quarter: 2024Q1

REPORT INFORMATION
  Report Type: Spontaneous
  Country: US (occurrence: US)
  Receive Date: 20240217
  Receipt Date: 20240217
  Transmission Date: 20240410
  Serious: Yes (Hospitalization, Other)
  Sender: FDA-Public Use
  Company Number: US-DRL-USA-SPO/USA/24/0002462

PATIENT
  Age: 58 Year
  Sex: Male

DRUGS (1)
  1. CLOZAPINE [Suspect]
     Active Substance: CLOZAPINE
     Indication: Product used for unknown indication
     Dosage: ON ORAL TABLETS 300MG AT HS
     Route: 048

REACTIONS (3)
  - Hospitalisation [Unknown]
  - Pulmonary mass [Unknown]
  - Neutropenia [Unknown]
